FAERS Safety Report 8767483 (Version 6)
Quarter: 2013Q3

REPORT INFORMATION
  Report Type: Spontaneous
  Country: JP (occurrence: JP)
  Receive Date: 20120904
  Receipt Date: 20130731
  Transmission Date: 20140515
  Serious: Yes (Death, Hospitalization)
  Sender: FDA-Public Use
  Company Number: JP-ABBOTT-12P-087-0975421-00

PATIENT
  Age: 78 Year
  Sex: Male
  Weight: 55.5 kg

DRUGS (8)
  1. LEUPLIN 3.75 MG [Suspect]
     Indication: PROSTATE CANCER
     Route: 058
     Dates: start: 20120707, end: 20120707
  2. LEUPLIN SR 11.25 MG [Suspect]
     Indication: PROSTATE CANCER
     Route: 058
     Dates: start: 20120802, end: 20120802
  3. CASODEX [Suspect]
     Indication: PROSTATE CANCER
     Route: 048
     Dates: start: 20120605, end: 20120821
  4. BLOPRESS [Concomitant]
     Indication: HYPERTENSION
     Route: 048
  5. HARNAL [Concomitant]
     Indication: BENIGN PROSTATIC HYPERPLASIA
     Route: 048
     Dates: start: 20120705
  6. PLETAAL [Concomitant]
     Indication: CEREBRAL INFARCTION
     Route: 048
     Dates: end: 20120905
  7. BAYASPIRIN [Concomitant]
     Indication: CEREBRAL INFARCTION
     Route: 048
     Dates: end: 20120905
  8. ARICEPT [Concomitant]
     Indication: DEMENTIA ALZHEIMER^S TYPE
     Route: 048

REACTIONS (8)
  - Disseminated intravascular coagulation [Fatal]
  - White blood cell count decreased [Fatal]
  - Platelet count decreased [Fatal]
  - Haematemesis [Fatal]
  - Blood pressure decreased [Fatal]
  - Melaena [Fatal]
  - Liver disorder [Fatal]
  - Pyrexia [Fatal]
